FAERS Safety Report 9176104 (Version 1)
Quarter: 2012Q4

REPORT INFORMATION
  Report Type: 
  Country: US (occurrence: US)
  Receive Date: 20120918
  Receipt Date: 20120918
  Transmission Date: 20130627
  Serious: Yes (Death)
  Sender: FDA-Public Use
  Company Number: US-BIOMARINP-003012

PATIENT
  Age: 4 None
  Sex: Male

DRUGS (1)
  1. KUVAN [Suspect]
     Indication: TETRAHYDROBIOPTERIN DEFICIENCY
     Route: 065
     Dates: start: 20111116

REACTIONS (3)
  - Death [Fatal]
  - Tetrahydrobiopterin deficiency [None]
  - Disease progression [None]
